FAERS Safety Report 8966635 (Version 1)
Quarter: 2012Q4

REPORT INFORMATION
  Report Type: Spontaneous
  Country: AU (occurrence: None)
  Receive Date: 20121206
  Receipt Date: 20121206
  Transmission Date: 20130627
  Serious: Yes (Other)
  Sender: FDA-Public Use
  Company Number: AU-1195549

PATIENT
  Sex: Male

DRUGS (5)
  1. AZOPT [Suspect]
     Indication: INTRAOCULAR PRESSURE INCREASED
     Dosage: (1 % 1x/6 hours OS Ophthalmic)
     Route: 047
  2. MAXIDEX OPHTHALMIC (DEXAMETHASONE) [Suspect]
     Indication: INTRAOCULAR PRESSURE INCREASED
     Dosage: (1 DF 1x/6 hours OS)
  3. BRIMONIDINE [Suspect]
     Indication: INTRAOCULAR PRESSURE INCREASED
     Dosage: (1 DF 1x/6 hours OS)
  4. ACETAZOLAMIDE [Suspect]
     Indication: INTRAOCULAR PRESSURE INCREASED
     Route: 048
  5. RANIBIZUMAB INJECTION [Concomitant]

REACTIONS (5)
  - Drug ineffective [None]
  - Eye pain [None]
  - Vision blurred [None]
  - Headache [None]
  - Intraocular pressure increased [None]
